FAERS Safety Report 8555753 (Version 2)
Quarter: 2013Q4

REPORT INFORMATION
  Report Type: Spontaneous
  Country: US (occurrence: US)
  Receive Date: 20120510
  Receipt Date: 20131118
  Transmission Date: 20140711
  Serious: Yes (Other)
  Sender: FDA-Public Use
  Company Number: US-ROCHE-1066229

PATIENT
  Sex: Female

DRUGS (2)
  1. ACCUTANE [Suspect]
     Indication: ACNE CYSTIC
     Route: 065
     Dates: start: 1995, end: 2006
  2. AMNESTEEM [Suspect]
     Indication: ACNE CYSTIC
     Route: 065
     Dates: start: 20111025

REACTIONS (4)
  - Injury [Unknown]
  - Migraine [Unknown]
  - Fatigue [Unknown]
  - Alopecia [Unknown]
